FAERS Safety Report 9593626 (Version 2)
Quarter: 2013Q4

REPORT INFORMATION
  Report Type: Spontaneous
  Country: US (occurrence: US)
  Receive Date: 20131004
  Receipt Date: 20131004
  Transmission Date: 20140711
  Serious: No
  Sender: FDA-Public Use
  Company Number: US-PURDUE-USA-2012-0090113

PATIENT
  Age: 61 Year
  Sex: Female
  Weight: 78.01 kg

DRUGS (2)
  1. BUTRANS [Suspect]
     Indication: PAIN
     Dosage: 10 MCG/HR, UNK
     Route: 062
     Dates: start: 20120405, end: 20120814
  2. BUTRANS [Suspect]
     Dosage: 5 MCG/HR, UNK
     Route: 062

REACTIONS (1)
  - Application site discolouration [Unknown]
